FAERS Safety Report 9282884 (Version 1)
Quarter: 2013Q2

REPORT INFORMATION
  Report Type: Spontaneous
  Country: FR (occurrence: None)
  Receive Date: 20130503
  Receipt Date: 20130503
  Transmission Date: 20140414
  Serious: Yes (Hospitalization)
  Sender: FDA-Public Use
  Company Number: AUR-APL-2013-03603

PATIENT
  Age: 69 Year
  Sex: Male

DRUGS (11)
  1. BISOPROLOL [Suspect]
     Indication: PRODUCT USED FOR UNKNOWN INDICATION
     Route: 048
     Dates: start: 2010
  2. TAHOR (ATORVASTATIN CALCIUM) [Suspect]
     Indication: PRODUCT USED FOR UNKNOWN INDICATION
     Route: 048
     Dates: start: 2008
  3. TAREG [Suspect]
     Indication: PRODUCT USED FOR UNKNOWN INDICATION
     Route: 048
  4. ASPEGIC [Concomitant]
  5. MOLSIDOMINE (MOLSIDOMINE) [Concomitant]
  6. ISOPTIN (VERAPAMIL) [Concomitant]
  7. LANTUS (INSULIN GLARGINE) [Concomitant]
  8. INEXIUM (ESOMEPRAZOLE MAGNESIUM) [Concomitant]
  9. IMODIUM (LOPERAMIDE HYDROCHLORIDE) [Concomitant]
  10. CREON (PANCREATIN) [Concomitant]
  11. DOLIPRANE (PARACETAMOL) [Concomitant]

REACTIONS (3)
  - Interstitial lung disease [None]
  - Lymphocytosis [None]
  - Haemoptysis [None]
